FAERS Safety Report 19898838 (Version 1)
Quarter: 2021Q3

REPORT INFORMATION
  Report Type: Spontaneous
  Country: CA (occurrence: CA)
  Receive Date: 20210930
  Receipt Date: 20210930
  Transmission Date: 20211014
  Serious: Yes (Other)
  Sender: FDA-Public Use
  Company Number: CA-LUPIN PHARMACEUTICALS INC.-2021-18441

PATIENT
  Age: 27 Year
  Sex: Male

DRUGS (7)
  1. TOPIRAMAT [Suspect]
     Active Substance: TOPIRAMATE
     Dosage: UNK (DOSE INCREASED)
     Route: 065
  2. PHENYTOIN SODIUM. [Suspect]
     Active Substance: PHENYTOIN SODIUM
     Indication: SEIZURE
     Dosage: UNK
     Route: 065
  3. CARBAMAZEPINE. [Suspect]
     Active Substance: CARBAMAZEPINE
     Indication: SEIZURE
     Dosage: UNK
     Route: 065
  4. TOPIRAMAT [Suspect]
     Active Substance: TOPIRAMATE
     Indication: SEIZURE
     Dosage: 500 MILLIGRAM, QD
     Route: 065
  5. PERAMPANEL [Concomitant]
     Active Substance: PERAMPANEL
     Indication: SEIZURE
     Dosage: UNK
     Route: 065
  6. TOPIRAMAT [Suspect]
     Active Substance: TOPIRAMATE
     Dosage: 300 MILLIGRAM, QD
     Route: 065
  7. PERAMPANEL [Concomitant]
     Active Substance: PERAMPANEL
     Dosage: 4 MILLIGRAM, QD (TITRATED UP TO 4 MG/DAY)
     Route: 065

REACTIONS (1)
  - Drug ineffective [Unknown]
